FAERS Safety Report 22953207 (Version 3)
Quarter: 2023Q4

REPORT INFORMATION
  Report Type: Spontaneous
  Country: US (occurrence: US)
  Receive Date: 20230918
  Receipt Date: 20231106
  Transmission Date: 20240110
  Serious: No
  Sender: FDA-Public Use
  Company Number: US-PFIZER INC-202300288902

PATIENT
  Age: 15 Year
  Sex: Male
  Weight: 47.619 kg

DRUGS (1)
  1. GENOTROPIN [Suspect]
     Active Substance: SOMATROPIN
     Indication: Growth hormone deficiency
     Dosage: UNK, 1X/DAY (1.2)

REACTIONS (4)
  - Wrong technique in device usage process [Unknown]
  - Device difficult to use [Unknown]
  - Device leakage [Unknown]
  - Device breakage [Unknown]
